FAERS Safety Report 6646598-4 (Version None)
Quarter: 2010Q1

REPORT INFORMATION
  Report Type: 
  Country: None (occurrence: None)
  Receive Date: 20100322
  Receipt Date: 20100322
  Transmission Date: 20100710
  Serious: Yes (Hospitalization)
  Sender: FDA-Public Use
  Company Number: None

PATIENT
  Age: 39 Year
  Sex: Female
  Weight: 97.977 kg

DRUGS (5)
  1. ABRAXANE [Suspect]
     Indication: BREAST CANCER
     Dosage: 100 MG/M2 IV ON DAYS 1, 8, 15 OF (6) 28-DAY CYCLES.
     Route: 042
     Dates: start: 20090618, end: 20091112
  2. AVASTIN [Suspect]
     Dosage: 10 MG/M2 IV ON DAYS 1 AND 15 OF (5) 28-DAY CYCLES
     Route: 042
     Dates: start: 20090618, end: 20091022
  3. XANAX [Concomitant]
  4. MOTRIN [Concomitant]
  5. ATIVAN [Concomitant]

REACTIONS (10)
  - IMPAIRED HEALING [None]
  - INFECTION [None]
  - INFUSION SITE ERYTHEMA [None]
  - INFUSION SITE EXTRAVASATION [None]
  - INFUSION SITE PAIN [None]
  - INFUSION SITE SWELLING [None]
  - SKIN GRAFT [None]
  - SKIN GRAFT FAILURE [None]
  - SKIN ULCER [None]
  - ULCER [None]
